FAERS Safety Report 8662027 (Version 3)
Quarter: 2012Q4

REPORT INFORMATION
  Report Type: 
  Country: None (occurrence: None)
  Receive Date: 20120712
  Receipt Date: 20121026
  Transmission Date: 20130627
  Serious: Yes (Other)
  Sender: FDA-Public Use
  Company Number: RS-GLAXOSMITHKLINE-B0813489A

PATIENT
  Sex: Male

DRUGS (3)
  1. SEROXAT [Suspect]
     Indication: PRODUCT USED FOR UNKNOWN INDICATION
     Dosage: 40MG per day
     Route: 048
     Dates: start: 20120402
  2. LAMICTAL [Concomitant]
  3. BROMAZEPAM [Concomitant]

REACTIONS (7)
  - Aggression [Recovered/Resolved]
  - Psychomotor hyperactivity [Recovered/Resolved]
  - Abnormal behaviour [Recovered/Resolved]
  - Speech disorder [Recovered/Resolved]
  - Logorrhoea [Recovered/Resolved]
  - Kleptomania [Recovered/Resolved]
  - Cognitive disorder [Recovered/Resolved]
